FAERS Safety Report 8599168-5 (Version None)
Quarter: 2012Q3

REPORT INFORMATION
  Report Type: 
  Country: None (occurrence: None)
  Receive Date: 20120816
  Receipt Date: 20120813
  Transmission Date: 20120928
  Serious: Yes (Life-Threatening)
  Sender: FDA-Public Use
  Company Number: CN-PFIZER INC-2012115083

PATIENT
  Age: 70 Year
  Sex: Male

DRUGS (12)
  1. PHOSPHATIDYL CHOLINE [Concomitant]
     Dosage: UNK
     Dates: start: 20120413
  2. TINIDAZOLE [Concomitant]
     Dosage: UNK
     Dates: start: 20120301, end: 20120410
  3. PIPERACILLIN AND TAZOBACTAM [Suspect]
     Indication: INFECTION PROPHYLAXIS
  4. DIAMMONIUM GLYCYRRHIZINATE [Concomitant]
     Dosage: UNK
     Dates: start: 20120413
  5. ALPROSTADIL [Concomitant]
     Dosage: UNK
     Dates: start: 20120411
  6. AMLODIPINE [Concomitant]
     Dosage: UNK
     Dates: start: 20120411
  7. VALSARTAN [Concomitant]
     Dosage: UNK
     Dates: start: 20120411
  8. INSULIN GLARGINE [Concomitant]
     Dosage: UNK
     Dates: start: 20120411
  9. PIPERACILLIN AND TAZOBACTAM [Suspect]
     Indication: DIABETIC FOOT INFECTION
     Dosage: UNK
     Dates: start: 20120412, end: 20120416
  10. GINKGO BILOBA [Concomitant]
     Dosage: UNK
     Dates: start: 20120411
  11. ACETYLSALICYLIC ACID [Concomitant]
     Dosage: UNK
     Dates: start: 20120413
  12. INSULIN ASPART [Concomitant]
     Dosage: UNK
     Dates: start: 20120411

REACTIONS (1)
  - ATRIOVENTRICULAR BLOCK COMPLETE [None]
